FAERS Safety Report 8511242-8 (Version None)
Quarter: 2012Q3

REPORT INFORMATION
  Report Type: 
  Country: None (occurrence: None)
  Receive Date: 20120716
  Receipt Date: 20120703
  Transmission Date: 20120928
  Serious: Yes (Other)
  Sender: FDA-Public Use
  Company Number: US-SANOFI-AVENTIS-2012SA048238

PATIENT
  Age: 88 Year
  Sex: Female

DRUGS (2)
  1. LOVENOX [Suspect]
     Indication: THROMBOSIS PROPHYLAXIS
     Dates: start: 20110901
  2. COUMADIN [Suspect]

REACTIONS (4)
  - ISCHAEMIC STROKE [None]
  - HAEMORRHAGIC STROKE [None]
  - RENAL IMPAIRMENT [None]
  - GINGIVAL BLEEDING [None]
